FAERS Safety Report 8771294 (Version 2)
Quarter: 2013Q2

REPORT INFORMATION
  Report Type: Report from Study
  Country: CA (occurrence: CA)
  Receive Date: 20120906
  Receipt Date: 20130515
  Transmission Date: 20140414
  Serious: Yes (Other)
  Sender: FDA-Public Use
  Company Number: PHHO2012CA012799

PATIENT
  Age: 59 Year
  Sex: Male
  Weight: 78.4 kg

DRUGS (1)
  1. EVEROLIMUS [Suspect]
     Indication: HEART TRANSPLANT
     Dosage: 50 MG, BID
     Dates: start: 20090721, end: 20120830

REACTIONS (1)
  - Pulmonary fibrosis [Unknown]
